FAERS Safety Report 9258592 (Version 1)
Quarter: 2013Q2

REPORT INFORMATION
  Report Type: Report from Study
  Country: CA (occurrence: CA)
  Receive Date: 20130426
  Receipt Date: 20130426
  Transmission Date: 20140414
  Serious: Yes (Hospitalization)
  Sender: FDA-Public Use
  Company Number: CA-JNJFOC-20130411705

PATIENT
  Sex: Male
  Weight: 79.1 kg

DRUGS (2)
  1. REMICADE [Suspect]
     Indication: CROHN^S DISEASE
     Route: 042
     Dates: start: 20111212
  2. PREDNISONE [Concomitant]
     Route: 065

REACTIONS (1)
  - Obstruction [Unknown]
